FAERS Safety Report 10094135 (Version 2)
Quarter: 2014Q3

REPORT INFORMATION
  Report Type: Spontaneous
  Country: FR (occurrence: FR)
  Receive Date: 20140422
  Receipt Date: 20140708
  Transmission Date: 20150326
  Serious: Yes (Hospitalization)
  Sender: FDA-Public Use
  Company Number: FR-BRISTOL-MYERS SQUIBB COMPANY-20626347

PATIENT
  Age: 87 Year
  Sex: Female

DRUGS (1)
  1. IPILIMUMAB [Suspect]
     Active Substance: IPILIMUMAB
     Indication: MALIGNANT MELANOMA
     Dosage: LAST INF ON 22JAN14
     Route: 042
     Dates: start: 20131120

REACTIONS (3)
  - Adrenocortical insufficiency acute [Recovered/Resolved]
  - Fungal test positive [Recovered/Resolved]
  - Blood culture positive [Recovered/Resolved]

NARRATIVE: CASE EVENT DATE: 20140320
